FAERS Safety Report 8667387 (Version 2)
Quarter: 2013Q1

REPORT INFORMATION
  Report Type: Spontaneous
  Country: FR (occurrence: FR)
  Receive Date: 20120717
  Receipt Date: 20130319
  Transmission Date: 20140127
  Serious: Yes (Hospitalization, Other)
  Sender: FDA-Public Use
  Company Number: FR-VERTEX PHARMACEUTICALS INC.-000000000000001130

PATIENT
  Age: 56 Year
  Sex: Male
  Weight: 50 kg

DRUGS (4)
  1. INCIVO [Suspect]
     Indication: HEPATITIS C
     Dosage: DOSAGE FORM: TABLET
     Dates: start: 20120102, end: 20120326
  2. VIRAFERON PEG [Concomitant]
     Indication: HEPATITIS C
     Dosage: 0.5 ML  PER DAY
     Route: 058
     Dates: start: 20120102, end: 20120704
  3. REBETOL [Concomitant]
     Indication: HEPATITIS C
     Dosage: 400MG-0-600MG
     Dates: start: 20120102, end: 20120704
  4. FRAXODI [Concomitant]
     Dosage: 0.5 ML, QD

REACTIONS (8)
  - Hepatocellular carcinoma [Unknown]
  - Portal vein thrombosis [Unknown]
  - Asthenia [Unknown]
  - Gastrointestinal motility disorder [Unknown]
  - Alanine aminotransferase increased [Unknown]
  - Visual acuity reduced [Unknown]
  - Tinnitus [Unknown]
  - Hypoacusis [Unknown]
